FAERS Safety Report 4405322-6 (Version None)
Quarter: 2004Q3

REPORT INFORMATION
  Report Type: 
  Country: None (occurrence: None)
  Receive Date: 20040715
  Receipt Date: 20040702
  Transmission Date: 20050211
  Serious: Yes (Other)
  Sender: FDA-Public Use
  Company Number: 2004044672

PATIENT
  Age: 75 Year
  Sex: Male

DRUGS (14)
  1. SORTIS (ATORVASTATIN) [Suspect]
     Indication: HYPERLIPIDAEMIA
     Dosage: 10 MG (10 MG, 1 IN 1 D), ORAL
     Route: 048
     Dates: start: 20020101, end: 20040419
  2. ALL OTHER THERAPEUTIC PRODUCTS (ALL OTHER THERAPEUTIC PRODUCTS) [Concomitant]
  3. METOPROLOL TARTRATE [Concomitant]
  4. MOLSIDOMINE (MOLSIDOMINE) [Concomitant]
  5. AMLODIPINE BESYLATE [Concomitant]
  6. RANITIDINE HYDROCHLORIDE [Concomitant]
  7. ACETYLCYSTEINE [Concomitant]
  8. CANDESARTAN CILEXETIL (CANDESARTAN CILEXETIL) [Concomitant]
  9. GLIMEPRIDE (GLIMEPRIDE) [Concomitant]
  10. CIPROFLOXACIN HCL [Concomitant]
  11. FUROSEMIDE [Concomitant]
  12. METAMIZOLE SODIUM (METAMIZOLE SODIUM) [Concomitant]
  13. HEPARIN [Concomitant]
  14. HYDROCHLOROTHIAZIDE [Concomitant]

REACTIONS (11)
  - BLOOD CREATININE INCREASED [None]
  - BLOOD LACTATE DEHYDROGENASE INCREASED [None]
  - BLOOD POTASSIUM INCREASED [None]
  - BLOOD UREA INCREASED [None]
  - CEREBRAL HAEMORRHAGE [None]
  - DISTURBANCE IN ATTENTION [None]
  - DYSARTHRIA [None]
  - HEMIPARESIS [None]
  - HYPERTENSION [None]
  - RESPIRATORY FAILURE [None]
  - RHABDOMYOLYSIS [None]
